FAERS Safety Report 8241836-9 (Version None)
Quarter: 2012Q1

REPORT INFORMATION
  Report Type: 
  Country: None (occurrence: None)
  Receive Date: 20120328
  Receipt Date: 20120323
  Transmission Date: 20120608
  Serious: Yes (Other)
  Sender: FDA-Public Use
  Company Number: GB-ASTRAZENECA-2012SE19804

PATIENT
  Age: 48 Year
  Sex: Female
  Weight: 79 kg

DRUGS (3)
  1. AMOXICILLIN [Suspect]
     Route: 048
     Dates: start: 20120308, end: 20120312
  2. METRONIDAZOLE [Suspect]
     Route: 048
     Dates: start: 20120308, end: 20120312
  3. OMEPRAZOLE [Suspect]
     Route: 048
     Dates: start: 20120308, end: 20120312

REACTIONS (2)
  - OEDEMA [None]
  - HYPERTENSION [None]
